FAERS Safety Report 9017648 (Version 1)
Quarter: 2013Q1

REPORT INFORMATION
  Report Type: Spontaneous
  Country: US (occurrence: US)
  Receive Date: 20130117
  Receipt Date: 20130117
  Transmission Date: 20140127
  Serious: Yes (Other)
  Sender: FDA-Public Use
  Company Number: US-009507513-1210USA013921

PATIENT
  Age: 60 Year
  Sex: Male

DRUGS (2)
  1. VIOXX [Suspect]
     Indication: ARTHRITIS
     Dosage: 25 MG, BID
     Route: 048
     Dates: start: 1999
  2. VERAPAMIL [Concomitant]
     Indication: BLOOD PRESSURE

REACTIONS (7)
  - Cerebrovascular accident [Recovering/Resolving]
  - Grand mal convulsion [Unknown]
  - Renal injury [Recovering/Resolving]
  - Haemorrhage [Recovering/Resolving]
  - Dehydration [Recovering/Resolving]
  - Anaemia [Recovering/Resolving]
  - Hypertension [Recovering/Resolving]
